FAERS Safety Report 25701067 (Version 1)
Quarter: 2025Q3

REPORT INFORMATION
  Report Type: Spontaneous
  Country: EG (occurrence: EG)
  Receive Date: 20250819
  Receipt Date: 20250819
  Transmission Date: 20251020
  Serious: Yes (Hospitalization, Other)
  Sender: MARKSANS PHARMA LIMITED
  Company Number: EG-MARKSANS PHARMA LIMITED-MPL202500074

PATIENT

DRUGS (1)
  1. IBUPROFEN [Suspect]
     Active Substance: IBUPROFEN
     Indication: Abdominal pain
     Route: 042

REACTIONS (2)
  - Embolia cutis medicamentosa [Not Recovered/Not Resolved]
  - Product preparation issue [Unknown]
